FAERS Safety Report 4667817-X (Version None)
Quarter: 2005Q2

REPORT INFORMATION
  Report Type: 
  Country: None (occurrence: None)
  Receive Date: 20050519
  Receipt Date: 20050519
  Transmission Date: 20051028
  Serious: Yes (Other)
  Sender: FDA-Public Use
  Company Number: None

PATIENT
  Sex: Female
  Weight: 60.3284 kg

DRUGS (3)
  1. FACTIVE [Suspect]
     Indication: ACUTE SINUSITIS
     Dosage: 320 MG QD ORAL
     Route: 048
     Dates: start: 20050504, end: 20050511
  2. ZYRTEC [Concomitant]
  3. NASSCORT AQ [Concomitant]

REACTIONS (3)
  - PRURITUS [None]
  - RASH GENERALISED [None]
  - RASH MACULO-PAPULAR [None]
